FAERS Safety Report 4468007-6 (Version None)
Quarter: 2004Q4

REPORT INFORMATION
  Report Type: 
  Country: None (occurrence: None)
  Receive Date: 20041001
  Receipt Date: 20040916
  Transmission Date: 20050328
  Serious: Yes (Life-Threatening, Other)
  Sender: FDA-Public Use
  Company Number: C2003-1822.03

PATIENT
  Age: 16 Year
  Sex: Female

DRUGS (15)
  1. CYSTAGON [Suspect]
     Indication: CYSTINOSIS
     Dosage: 1600MG/DAY, ORAL
     Route: 048
     Dates: start: 19890101
  2. CYSTAGON [Suspect]
     Indication: NEPHROPATHY
     Dosage: 1600MG/DAY, ORAL
     Route: 048
     Dates: start: 19890101
  3. CYSTEAMINE EYE DROPS SIGMA TAU [Suspect]
     Indication: CYSTINOSIS
  4. CYSTEAMINE EYE DROPS SIGMA TAU [Suspect]
     Indication: NEPHROPATHY
  5. POLYCITRA [Concomitant]
  6. NEUTRAPHOS [Concomitant]
  7. CARNITINE [Concomitant]
  8. POTASSIUM [Concomitant]
  9. VITAMIN D [Concomitant]
  10. TACROLIMUS [Concomitant]
  11. LEVOTHYROXINE SODIUM [Concomitant]
  12. MAGNESIUM [Concomitant]
  13. FAMOTIDINE [Concomitant]
  14. PREDNISONE [Concomitant]
  15. TRIVORA-21 [Concomitant]

REACTIONS (5)
  - HYPOTHYROIDISM [None]
  - OPHTHALMOLOGICAL EXAMINATION ABNORMAL [None]
  - OPTIC NERVE DISORDER [None]
  - RENAL TRANSPLANT [None]
  - VISUAL FIELD DEFECT [None]
